FAERS Safety Report 11348980 (Version 1)
Quarter: 2015Q3

REPORT INFORMATION
  Report Type: Report from Study
  Country: US (occurrence: US)
  Receive Date: 20150807
  Receipt Date: 20150807
  Transmission Date: 20151125
  Serious: Yes (Other)
  Sender: FDA-Public Use
  Company Number: US-ACTELION-A-US2015-121861

PATIENT
  Age: 45 Year
  Sex: Female

DRUGS (2)
  1. MACITENTAN [Suspect]
     Active Substance: MACITENTAN
     Indication: PULMONARY ARTERIAL HYPERTENSION
     Dosage: 10 MG, QD
     Route: 048
  2. ELIQUIS [Concomitant]
     Active Substance: APIXABAN

REACTIONS (7)
  - Piloerection [Unknown]
  - Throat tightness [Unknown]
  - Hyperhidrosis [Unknown]
  - Eating disorder [Unknown]
  - Urticaria [Unknown]
  - Dysgeusia [Unknown]
  - Rash [Unknown]
